FAERS Safety Report 5492177-4 (Version None)
Quarter: 2007Q4

REPORT INFORMATION
  Report Type: 
  Country: None (occurrence: None)
  Receive Date: 20071022
  Receipt Date: 20071011
  Transmission Date: 20080405
  Serious: Yes (Other)
  Sender: FDA-Public Use
  Company Number: JP-ROCHE-506607

PATIENT
  Age: 41 Year
  Sex: Male

DRUGS (18)
  1. VALIXA [Suspect]
     Indication: CYTOMEGALOVIRUS OESOPHAGITIS
     Route: 048
     Dates: start: 20060707, end: 20060713
  2. REYATAZ [Suspect]
     Indication: HIV INFECTION
     Route: 048
     Dates: start: 20060905
  3. CLARITHROMYCIN [Suspect]
     Route: 048
     Dates: start: 20060925, end: 20061002
  4. CLARITHROMYCIN [Suspect]
     Route: 048
     Dates: start: 20061010, end: 20061211
  5. ESANBUTOL [Suspect]
     Route: 048
     Dates: start: 20060925
  6. ZITHROMAX [Suspect]
     Route: 048
     Dates: start: 20061003, end: 20061009
  7. ZITHROMAX [Suspect]
     Route: 048
     Dates: start: 20061212, end: 20070122
  8. RIFABUTIN [Suspect]
     Route: 065
     Dates: start: 20061003, end: 20070331
  9. BAKTAR [Concomitant]
     Route: 048
     Dates: start: 20060625, end: 20060724
  10. BAKTAR [Concomitant]
     Route: 048
     Dates: start: 20060725
  11. DIFLUCAN [Concomitant]
     Dates: start: 20060630, end: 20060713
  12. FUNGIZONE [Concomitant]
     Route: 048
     Dates: start: 20060714, end: 20060801
  13. FUNGIZONE [Concomitant]
     Route: 048
     Dates: start: 20060905, end: 20060925
  14. NORVIR [Concomitant]
     Dosage: DRUG REPORTED AS NORVIR_SOFT.
     Route: 048
     Dates: start: 20060905
  15. EPZICOM [Concomitant]
     Route: 048
     Dates: start: 20060905
  16. RIFADIN [Concomitant]
     Route: 048
     Dates: start: 20061010
  17. DOXORUBICIN HCL [Concomitant]
     Dosage: DOSAGE REGIMEN: 30 MG EVERY 3-4 WEEKS.
     Dates: start: 20061121
  18. DOXORUBICIN HYDROCHLORIDE [Concomitant]
     Dosage: REPORTED VOR 3-4 WEEKS AS AN OUTPATIENT.
     Dates: start: 20061121

REACTIONS (7)
  - ATYPICAL MYCOBACTERIAL INFECTION [None]
  - HEPATIC FUNCTION ABNORMAL [None]
  - IMMUNE RECONSTITUTION SYNDROME [None]
  - KAPOSI'S SARCOMA [None]
  - LYMPHOMA [None]
  - PROGRESSIVE MULTIFOCAL LEUKOENCEPHALOPATHY [None]
  - VISUAL FIELD DEFECT [None]
